FAERS Safety Report 4456666-3 (Version None)
Quarter: 2004Q3

REPORT INFORMATION
  Report Type: 
  Country: None (occurrence: None)
  Receive Date: 20040923
  Receipt Date: 20040623
  Transmission Date: 20050211
  Serious: Yes (Hospitalization)
  Sender: FDA-Public Use
  Company Number: AT-BRISTOL-MYERS SQUIBB COMPANY-12622981

PATIENT
  Age: 74 Year
  Sex: Male

DRUGS (2)
  1. CETUXIMAB [Suspect]
     Indication: COLORECTAL CANCER METASTATIC
     Dosage: DATE OF 1ST INFUSION 18-MAR-2004
     Route: 042
     Dates: start: 20040526, end: 20040526
  2. IRINOTECAN [Suspect]
     Indication: COLORECTAL CANCER METASTATIC
     Dosage: DATE OF 1ST INFUSION 18-MAR-04
     Route: 042
     Dates: start: 20040512, end: 20040512

REACTIONS (1)
  - DERMOID CYST [None]
